FAERS Safety Report 11690969 (Version 1)
Quarter: 2015Q4

REPORT INFORMATION
  Report Type: Spontaneous
  Country: JP (occurrence: JP)
  Receive Date: 20151102
  Receipt Date: 20151102
  Transmission Date: 20160304
  Serious: Yes (Other)
  Sender: FDA-Public Use
  Company Number: JP-AKORN PHARMACEUTICALS-2015AKN00635

PATIENT
  Age: 66 Year
  Sex: Female

DRUGS (2)
  1. PRORANON [Concomitant]
     Dosage: UNK
     Route: 047
     Dates: end: 20141104
  2. ZIOPTAN [Suspect]
     Active Substance: TAFLUPROST
     Indication: GLAUCOMA
     Dosage: 2 GTT, QD, OU
     Route: 047
     Dates: start: 20131216

REACTIONS (1)
  - Macular fibrosis [Recovering/Resolving]

NARRATIVE: CASE EVENT DATE: 20151020
